FAERS Safety Report 8335808-3 (Version None)
Quarter: 2012Q2

REPORT INFORMATION
  Report Type: 
  Country: None (occurrence: None)
  Receive Date: 20120504
  Receipt Date: 20080811
  Transmission Date: 20120825
  Serious: Yes (Other)
  Sender: FDA-Public Use
  Company Number: US-BAYER-200825386NA

PATIENT
  Sex: Male
  Weight: 133.79 kg

DRUGS (36)
  1. MAGNEVIST [Suspect]
     Dates: start: 20030326, end: 20030326
  2. MAGNEVIST [Suspect]
     Dosage: UNK
     Dates: start: 20030605, end: 20030605
  3. OMNISCAN [Suspect]
     Indication: NUCLEAR MAGNETIC RESONANCE IMAGING
  4. OPTIMARK [Suspect]
     Indication: NUCLEAR MAGNETIC RESONANCE IMAGING
  5. COUMADIN [Concomitant]
     Indication: DEEP VEIN THROMBOSIS
     Dosage: UNK
     Dates: start: 20030101, end: 20050101
  6. SIMVASTATIN [Concomitant]
     Dosage: 40 MG AT BEDTIME
  7. SEVELAMER [Concomitant]
     Dosage: 800MG
     Dates: start: 20030822
  8. MAGNEVIST [Suspect]
     Dosage: 30 CC
     Route: 042
     Dates: start: 20030326, end: 20030326
  9. MAGNEVIST [Suspect]
     Indication: LIVER SCAN
     Dosage: UNK
     Dates: start: 20030820, end: 20030820
  10. ALTACE [Concomitant]
     Indication: BLOOD PRESSURE ABNORMAL
     Dosage: UNK
     Dates: start: 20010101
  11. ULTRAM [Concomitant]
     Indication: PAIN
     Dosage: UNK
     Dates: start: 20020101, end: 20030101
  12. ALTEPLASE [Concomitant]
     Dosage: UNK
     Dates: start: 20050331
  13. MAGNEVIST [Suspect]
     Indication: NUCLEAR MAGNETIC RESONANCE IMAGING BRAIN
     Dates: start: 20030117, end: 20030117
  14. VERAPAMIL [Concomitant]
     Indication: BLOOD PRESSURE ABNORMAL
     Dosage: UNK
     Dates: start: 20010101
  15. ZOCOR [Concomitant]
     Indication: BLOOD PRESSURE ABNORMAL
     Dosage: UNK
     Dates: start: 20010101, end: 20050101
  16. MAGNEVIST [Suspect]
     Dosage: UNK
     Dates: start: 20031208, end: 20031208
  17. PROHANCE [Suspect]
     Indication: NUCLEAR MAGNETIC RESONANCE IMAGING
  18. DIOVAN [Concomitant]
     Indication: BLOOD PRESSURE ABNORMAL
     Dosage: UNK
     Dates: start: 20030101, end: 20040101
  19. ZEMPLAR [Concomitant]
     Dosage: UNK
     Dates: start: 20050427
  20. NEPHROCAPS [Concomitant]
     Indication: RENAL FAILURE
     Dosage: DAILY
     Dates: start: 20010101
  21. NORVASC [Concomitant]
     Indication: BLOOD PRESSURE ABNORMAL
     Dosage: UNK
     Dates: start: 20010101, end: 20030101
  22. EPOGEN [Concomitant]
     Indication: DIALYSIS
     Dosage: UNK
     Dates: start: 20011101, end: 20050401
  23. ZEMPLAR [Concomitant]
     Dosage: UNK
     Dates: start: 20050329
  24. IRON [Concomitant]
     Indication: ANAEMIA
  25. MAGNEVIST [Suspect]
     Indication: NUCLEAR MAGNETIC RESONANCE IMAGING
     Dates: start: 20021220, end: 20021220
  26. MAGNEVIST [Suspect]
     Dosage: UNK
     Dates: start: 20010731, end: 20010731
  27. MAGNEVIST [Suspect]
     Dosage: 30 CC
     Route: 042
     Dates: start: 20021220, end: 20021220
  28. ATACAND [CANDESARTAN CILEXETIL,HYDROCHLOROTHIAZIDE] [Concomitant]
     Indication: BLOOD PRESSURE ABNORMAL
     Dosage: UNK
     Dates: start: 20010101
  29. MAGNEVIST [Suspect]
     Dosage: 25CC
     Route: 042
     Dates: start: 20030117, end: 20030117
  30. MAGNEVIST [Suspect]
     Dosage: 27 CC
     Route: 042
     Dates: start: 20050323, end: 20050323
  31. ALTEPLASE [Concomitant]
     Dosage: UNK
     Dates: start: 20050324
  32. NEURONTIN [Concomitant]
     Dosage: 100MG EVERY DAY
     Dates: start: 20030701
  33. MULTIHANCE [Suspect]
     Indication: NUCLEAR MAGNETIC RESONANCE IMAGING
  34. INSULIN [Concomitant]
     Indication: DIABETES MELLITUS
     Dosage: UNK
     Dates: start: 19830101, end: 20080814
  35. TOPROL-XL [Concomitant]
     Indication: BLOOD PRESSURE ABNORMAL
     Dosage: UNK
     Dates: start: 20010101, end: 20050101
  36. SEVELAMER [Concomitant]
     Dosage: UNK
     Dates: start: 20030905

REACTIONS (12)
  - SCAR [None]
  - GENERAL PHYSICAL HEALTH DETERIORATION [None]
  - MOVEMENT DISORDER [None]
  - PAIN [None]
  - FIBROSIS [None]
  - EMOTIONAL DISTRESS [None]
  - ANXIETY [None]
  - MOBILITY DECREASED [None]
  - SKIN TIGHTNESS [None]
  - INJURY [None]
  - JOINT CONTRACTURE [None]
  - NEPHROGENIC SYSTEMIC FIBROSIS [None]
